FAERS Safety Report 7266963-4 (Version None)
Quarter: 2011Q1

REPORT INFORMATION
  Report Type: 
  Country: None (occurrence: None)
  Receive Date: 20110201
  Receipt Date: 20110121
  Transmission Date: 20110831
  Serious: Yes (Other)
  Sender: FDA-Public Use
  Company Number: US-AMGEN-USASP2010003040

PATIENT
  Age: 49 Year
  Sex: Male
  Weight: 68.027 kg

DRUGS (4)
  1. PROCRIT [Suspect]
     Indication: ANAEMIA
     Dosage: 40000 UNIT, QWK
     Route: 058
     Dates: start: 20100601
  2. PROCRIT [Suspect]
     Dosage: 20000 UNIT, UNK
  3. RIBASPHERE [Concomitant]
     Dosage: 400 MG, BID
     Route: 048
     Dates: start: 20101109
  4. INTERFERON ALFA-2B [Concomitant]
     Dosage: 0.5 ML, QWK
     Route: 058
     Dates: start: 20100309

REACTIONS (7)
  - RENAL PAIN [None]
  - FLANK PAIN [None]
  - LOSS OF CONSCIOUSNESS [None]
  - DYSURIA [None]
  - PAIN [None]
  - HAEMATURIA [None]
  - CALCULUS URETERIC [None]
